FAERS Safety Report 10636990 (Version 1)
Quarter: 2014Q4

REPORT INFORMATION
  Report Type: Spontaneous
  Country: US (occurrence: None)
  Receive Date: 20141204
  Receipt Date: 20141204
  Transmission Date: 20150529
  Serious: No
  Sender: FDA-Public Use
  Company Number: None

PATIENT
  Age: 37 Year
  Sex: Female
  Weight: 55.79 kg

DRUGS (2)
  1. HYDROCODONE POLISTIREX [Suspect]
     Active Substance: HYDROCODONE POLISTIREX
     Indication: RESPIRATORY TRACT CONGESTION
     Route: 048
     Dates: start: 20141201, end: 20141203
  2. HYDROCODONE POLISTIREX [Suspect]
     Active Substance: HYDROCODONE POLISTIREX
     Indication: COUGH
     Route: 048
     Dates: start: 20141201, end: 20141203

REACTIONS (3)
  - Drug ineffective [None]
  - Product substitution issue [None]
  - Product quality issue [None]

NARRATIVE: CASE EVENT DATE: 20141201
